FAERS Safety Report 12930110 (Version 1)
Quarter: 2016Q4

REPORT INFORMATION
  Report Type: Spontaneous
  Country: US (occurrence: US)
  Receive Date: 20161110
  Receipt Date: 20161110
  Transmission Date: 20170207
  Serious: Yes (Life-Threatening, Hospitalization)
  Sender: FDA-Public Use
  Company Number: None

PATIENT
  Age: 61 Year
  Sex: Male
  Weight: 112.5 kg

DRUGS (6)
  1. ASPIRIN. [Concomitant]
     Active Substance: ASPIRIN
  2. HUMIRA [Suspect]
     Active Substance: ADALIMUMAB
     Indication: ANKYLOSING SPONDYLITIS
     Dosage: ?          OTHER FREQUENCY:ONCE EVERY 2-WKS;?
     Route: 030
     Dates: start: 20160601, end: 20161101
  3. MOTRIN [Concomitant]
     Active Substance: IBUPROFEN
  4. PRO-BIOTICS [Concomitant]
  5. VITAMIN D [Concomitant]
     Active Substance: CHOLECALCIFEROL
  6. GLUCOSIMINE [Concomitant]

REACTIONS (3)
  - Streptococcus test positive [None]
  - Immune system disorder [None]
  - Arthritis bacterial [None]

NARRATIVE: CASE EVENT DATE: 20161101
